FAERS Safety Report 8762101 (Version 7)
Quarter: 2014Q2

REPORT INFORMATION
  Report Type: Spontaneous
  Country: US (occurrence: US)
  Receive Date: 20120830
  Receipt Date: 20140404
  Transmission Date: 20141212
  Serious: Yes (Hospitalization, Disabling, Other)
  Sender: FDA-Public Use
  Company Number: US-009507513-1205USA00033

PATIENT
  Sex: Female

DRUGS (2)
  1. FOSAMAX [Suspect]
     Indication: OSTEOPOROSIS
     Dosage: 70 MG, QW
     Route: 048
     Dates: start: 2003, end: 2010
  2. FOSAMAX [Suspect]
     Indication: OSTEOPOROSIS
     Dosage: UNK
     Route: 048
     Dates: start: 20080422, end: 20110725

REACTIONS (44)
  - Femur fracture [Unknown]
  - Intramedullary rod insertion [Unknown]
  - Fracture nonunion [Unknown]
  - Device failure [Unknown]
  - Hip arthroplasty [Unknown]
  - Peripheral venous disease [Unknown]
  - Low turnover osteopathy [Unknown]
  - Pneumonia [Unknown]
  - Pneumonia [Unknown]
  - Lumbar vertebral fracture [Unknown]
  - Cementoplasty [Unknown]
  - Anaemia postoperative [Unknown]
  - Procedural pain [Unknown]
  - Hypoventilation [Unknown]
  - Renal failure chronic [Not Recovered/Not Resolved]
  - Insomnia [Unknown]
  - Compression fracture [Recovering/Resolving]
  - Dehydration [Unknown]
  - Atelectasis [Unknown]
  - Adverse drug reaction [Unknown]
  - Palpitations [Unknown]
  - Blood pressure inadequately controlled [Recovering/Resolving]
  - Osteonecrosis of jaw [Unknown]
  - Anxiety [Not Recovered/Not Resolved]
  - Depression [Not Recovered/Not Resolved]
  - Fall [Unknown]
  - Wrist surgery [Unknown]
  - Aortic arteriosclerosis [Unknown]
  - Rheumatoid arthritis [Unknown]
  - Essential hypertension [Unknown]
  - Osteoarthritis [Unknown]
  - Pain [Not Recovered/Not Resolved]
  - Cataract [Unknown]
  - Obesity [Unknown]
  - Type 2 diabetes mellitus [Unknown]
  - Umbilical hernia repair [Unknown]
  - Foot operation [Unknown]
  - Fasciotomy [Unknown]
  - Catheterisation cardiac [Unknown]
  - Bundle branch block [Not Recovered/Not Resolved]
  - Drug hypersensitivity [Unknown]
  - Drug hypersensitivity [Unknown]
  - Back pain [Unknown]
  - Oedema peripheral [Recovering/Resolving]
